FAERS Safety Report 9859830 (Version 1)
Quarter: 2014Q1

REPORT INFORMATION
  Report Type: Spontaneous
  Country: FR (occurrence: FR)
  Receive Date: 20140131
  Receipt Date: 20140131
  Transmission Date: 20141002
  Serious: Yes (Life-Threatening, Hospitalization, Other)
  Sender: FDA-Public Use
  Company Number: FR-ABBVIE-14P-056-1194778-00

PATIENT
  Age: 49 Year
  Sex: Male

DRUGS (7)
  1. NORVIR [Suspect]
     Indication: PRODUCT USED FOR UNKNOWN INDICATION
     Route: 048
     Dates: start: 20130829, end: 20130829
  2. TRUVADA [Suspect]
     Indication: PRODUCT USED FOR UNKNOWN INDICATION
     Dates: start: 20130829, end: 20130829
  3. REYATAZ [Suspect]
     Indication: PRODUCT USED FOR UNKNOWN INDICATION
     Dates: start: 20130829, end: 20130829
  4. IBUPROFEN [Suspect]
     Indication: PRODUCT USED FOR UNKNOWN INDICATION
     Route: 048
     Dates: start: 20130829, end: 20130829
  5. COLCHICINE [Suspect]
     Indication: PRODUCT USED FOR UNKNOWN INDICATION
     Dates: start: 20130829, end: 20130829
  6. ALCOHOL [Suspect]
     Indication: PRODUCT USED FOR UNKNOWN INDICATION
  7. SEROPLEX [Concomitant]
     Indication: ANXIETY

REACTIONS (20)
  - Renal failure acute [Unknown]
  - Mouth ulceration [Recovered/Resolved]
  - Agranulocytosis [Recovered/Resolved]
  - Thrombocytopenia [Recovered/Resolved]
  - Rhabdomyolysis [Recovered/Resolved]
  - Electrocardiogram abnormal [Recovered/Resolved]
  - Intentional overdose [Unknown]
  - Vomiting [Unknown]
  - Diarrhoea [Unknown]
  - Myalgia [Unknown]
  - Oliguria [Unknown]
  - Hypophagia [Unknown]
  - Fluid intake reduced [Unknown]
  - Hyperkalaemia [Unknown]
  - Liver function test abnormal [Unknown]
  - Troponin increased [Unknown]
  - Hypertension [Unknown]
  - Polyuria [Unknown]
  - Oesophageal ulcer [Unknown]
  - Odynophagia [Unknown]
